FAERS Safety Report 4555664-9 (Version None)
Quarter: 2005Q1

REPORT INFORMATION
  Report Type: 
  Country: None (occurrence: None)
  Receive Date: 20050118
  Receipt Date: 20050118
  Transmission Date: 20050727
  Serious: Yes (Other)
  Sender: FDA-Public Use
  Company Number: None

PATIENT
  Age: 8 Year
  Sex: Female
  Weight: 22.6799 kg

DRUGS (4)
  1. TUSSIN CF   CHILDREN + ADULT  CVS [Suspect]
     Indication: COUGH
     Dosage: 10ML  4HRS ORAL
     Route: 048
     Dates: start: 20050113, end: 20050115
  2. TUSSIN CF   CHILDREN + ADULT  CVS [Suspect]
     Indication: NASOPHARYNGITIS
     Dosage: 10ML  4HRS ORAL
     Route: 048
     Dates: start: 20050113, end: 20050115
  3. TUSSIN CF   CHILDREN + ADULT  CVS [Suspect]
     Indication: RHINORRHOEA
     Dosage: 10ML  4HRS ORAL
     Route: 048
     Dates: start: 20050113, end: 20050115
  4. TUSSIN CF   CHILDREN + ADULT  CVS [Suspect]
     Indication: THROAT IRRITATION
     Dosage: 10ML  4HRS ORAL
     Route: 048
     Dates: start: 20050113, end: 20050115

REACTIONS (1)
  - ADVERSE DRUG REACTION [None]
